FAERS Safety Report 21298376 (Version 2)
Quarter: 2022Q3

REPORT INFORMATION
  Report Type: Report from Study
  Country: BR (occurrence: BR)
  Receive Date: 20220906
  Receipt Date: 20220913
  Transmission Date: 20221026
  Serious: Yes (Other)
  Sender: FDA-Public Use
  Company Number: BR-NOVARTISPH-NVSC2022BR198689

PATIENT
  Age: 91 Year
  Sex: Female

DRUGS (2)
  1. VIGAMOX [Suspect]
     Active Substance: MOXIFLOXACIN HYDROCHLORIDE
     Indication: Product used for unknown indication
     Dosage: 5 ML
     Route: 065
  2. VIGAMOX [Suspect]
     Active Substance: MOXIFLOXACIN HYDROCHLORIDE
     Dosage: 5 ML
     Route: 065

REACTIONS (8)
  - Cataract [Unknown]
  - Macular degeneration [Unknown]
  - Visual impairment [Unknown]
  - Contusion [Unknown]
  - Nervousness [Unknown]
  - Eye pain [Unknown]
  - Product use in unapproved indication [Unknown]
  - Product container seal issue [Unknown]

NARRATIVE: CASE EVENT DATE: 20220830
